FAERS Safety Report 5945352-6 (Version None)
Quarter: 2008Q4

REPORT INFORMATION
  Report Type: 
  Country: None (occurrence: None)
  Receive Date: 20081107
  Receipt Date: 20081027
  Transmission Date: 20090506
  Serious: Yes (Life-Threatening, Hospitalization, Other)
  Sender: FDA-Public Use
  Company Number: GB-PFIZER INC-2008036472

PATIENT
  Sex: Male

DRUGS (2)
  1. SUTENT [Suspect]
     Indication: RENAL CANCER METASTATIC
     Route: 048
     Dates: start: 20080101
  2. SUTENT [Suspect]
     Route: 048
     Dates: start: 20080425, end: 20080509

REACTIONS (4)
  - CHEST PAIN [None]
  - DYSPNOEA [None]
  - EPISTAXIS [None]
  - HAEMOPTYSIS [None]
